FAERS Safety Report 5569993-3 (Version None)
Quarter: 2007Q4

REPORT INFORMATION
  Report Type: 
  Country: None (occurrence: None)
  Receive Date: 20071217
  Receipt Date: 20071206
  Transmission Date: 20080405
  Serious: Yes (Hospitalization)
  Sender: FDA-Public Use
  Company Number: GXKR2007CH10513

PATIENT
  Age: 84 Year
  Sex: Female

DRUGS (6)
  1. ACETAMINOPHEN [Suspect]
  2. ETHANOL(ETHANOL) [Suspect]
  3. OLANZAPINE [Concomitant]
  4. ACETYLSALICYLIC ACID SRT [Concomitant]
  5. METROPROLOL (METROPROLOL) [Concomitant]
  6. LACTULOSE [Concomitant]

REACTIONS (9)
  - ACUTE HEPATIC FAILURE [None]
  - ALCOHOL INTERACTION [None]
  - ANOREXIA [None]
  - COAGULOPATHY [None]
  - DRUG TOXICITY [None]
  - INTERNATIONAL NORMALISED RATIO INCREASED [None]
  - METABOLIC ACIDOSIS [None]
  - NAUSEA [None]
  - SOMNOLENCE [None]
